FAERS Safety Report 22057204 (Version 4)
Quarter: 2023Q2

REPORT INFORMATION
  Report Type: Report from Study
  Country: AU (occurrence: AU)
  Receive Date: 20230303
  Receipt Date: 20230406
  Transmission Date: 20230722
  Serious: Yes (Hospitalization)
  Sender: FDA-Public Use
  Company Number: AU-ABBVIE-4325439

PATIENT
  Sex: Female

DRUGS (2)
  1. CARBIDOPA\LEVODOPA [Suspect]
     Active Substance: CARBIDOPA\LEVODOPA
     Indication: Parkinson^s disease
     Dosage: CONTINUOUS DOSE 1.4 MLS O/N 1 ML EXTRA DOSE 1.0 ML?DOSE INCREASED?FIRST ADMIN DATE:2023?DURATION ...
     Route: 050
     Dates: end: 2023
  2. CARBIDOPA\LEVODOPA [Suspect]
     Active Substance: CARBIDOPA\LEVODOPA
     Dosage: MORNING DOSE 3.5 ML; CONTINUOUS DOSE 1.0 ML; EXTRA DOSE 0.7 ML/HR?DURATION TEXT: 16 HOURS?DRUG ST...
     Route: 050
     Dates: end: 2023

REACTIONS (5)
  - Mobility decreased [Recovering/Resolving]
  - Freezing phenomenon [Recovering/Resolving]
  - Dyskinesia [Recovering/Resolving]
  - Drug ineffective [Unknown]
  - Bradykinesia [Recovering/Resolving]

NARRATIVE: CASE EVENT DATE: 20230101
